FAERS Safety Report 5110745-6 (Version None)
Quarter: 2006Q3

REPORT INFORMATION
  Report Type: 
  Country: None (occurrence: None)
  Receive Date: 20060919
  Receipt Date: 20051013
  Transmission Date: 20061208
  Serious: Yes (Other)
  Sender: FDA-Public Use
  Company Number: JS-ITMN-200511IM000770

PATIENT
  Age: 35 Year
  Sex: Female

DRUGS (1)
  1. INTERFERON ALFACON-1 [Suspect]
     Indication: HEPATITIS C
     Dosage: 9 UG;TIW;SC
     Route: 058
     Dates: start: 20050701, end: 20051004

REACTIONS (2)
  - BREAST CANCER FEMALE [None]
  - MYALGIA [None]
